FAERS Safety Report 19694452 (Version 2)
Quarter: 2021Q3

REPORT INFORMATION
  Report Type: Spontaneous
  Country: US (occurrence: US)
  Receive Date: 20210812
  Receipt Date: 20210817
  Transmission Date: 20211014
  Serious: Yes (Hospitalization)
  Sender: FDA-Public Use
  Company Number: US-TEVA-2021-US-1940256

PATIENT
  Age: 52 Year
  Sex: Female

DRUGS (10)
  1. CLONAZEPAM. [Suspect]
     Active Substance: CLONAZEPAM
     Indication: SCHIZOAFFECTIVE DISORDER BIPOLAR TYPE
     Dosage: 3 MILLIGRAM DAILY; THREE TIMES DAILY
     Route: 065
  2. VALPROIC ACID. [Concomitant]
     Active Substance: VALPROIC ACID
     Indication: SCHIZOAFFECTIVE DISORDER BIPOLAR TYPE
     Route: 065
  3. QUETIAPINE. [Suspect]
     Active Substance: QUETIAPINE
     Indication: SCHIZOAFFECTIVE DISORDER BIPOLAR TYPE
     Dosage: 800 MILLIGRAM DAILY;
     Route: 065
  4. HYDROXYCHLOROQUINE [Suspect]
     Active Substance: HYDROXYCHLOROQUINE
     Indication: COVID-19
     Route: 065
  5. CHLORPROMAZINE. [Suspect]
     Active Substance: CHLORPROMAZINE
     Indication: SCHIZOAFFECTIVE DISORDER BIPOLAR TYPE
     Dosage: 800 MILLIGRAM DAILY;
     Route: 048
  6. LITHIUM. [Concomitant]
     Active Substance: LITHIUM
     Indication: SCHIZOAFFECTIVE DISORDER BIPOLAR TYPE
     Dosage: 900 MILLIGRAM DAILY; THREE TIMES DAILY
     Route: 065
  7. HALOPERIDOL. [Concomitant]
     Active Substance: HALOPERIDOL
     Indication: AGITATION
  8. AZITHROMYCIN ANHYDROUS. [Suspect]
     Active Substance: AZITHROMYCIN ANHYDROUS
     Indication: COVID-19
     Route: 065
  9. HALOPERIDOL. [Concomitant]
     Active Substance: HALOPERIDOL
     Indication: SCHIZOAFFECTIVE DISORDER BIPOLAR TYPE
     Route: 065
  10. HALOPERIDOL. [Concomitant]
     Active Substance: HALOPERIDOL
     Indication: HALLUCINATION, VISUAL

REACTIONS (3)
  - Somnolence [Recovering/Resolving]
  - Off label use [Unknown]
  - Electrocardiogram QT prolonged [Recovered/Resolved]
